FAERS Safety Report 17002803 (Version 3)
Quarter: 2025Q2

REPORT INFORMATION
  Report Type: Report from Study
  Country: IT (occurrence: IT)
  Receive Date: 20191107
  Receipt Date: 20250630
  Transmission Date: 20250717
  Serious: Yes (Other)
  Sender: AUROBINDO
  Company Number: None

PATIENT
  Age: 48 Year
  Sex: Female

DRUGS (9)
  1. VALGANCICLOVIR [Suspect]
     Active Substance: VALGANCICLOVIR
     Indication: Cytomegalovirus infection reactivation
     Route: 065
  2. METHOTREXATE [Suspect]
     Active Substance: METHOTREXATE
     Indication: Prophylaxis against graft versus host disease
     Route: 065
  3. FLUDARABINE [Suspect]
     Active Substance: FLUDARABINE PHOSPHATE
     Indication: Allogenic stem cell transplantation
     Route: 065
  4. THIOTEPA [Suspect]
     Active Substance: THIOTEPA
     Indication: Allogenic stem cell transplantation
     Route: 065
  5. BUSULFAN [Suspect]
     Active Substance: BUSULFAN
     Indication: Allogenic stem cell transplantation
     Route: 065
  6. CYCLOSPORINE [Suspect]
     Active Substance: CYCLOSPORINE
     Indication: Prophylaxis against graft versus host disease
     Route: 065
  7. FOSCARNET [Suspect]
     Active Substance: FOSCARNET
     Indication: Cytomegalovirus infection reactivation
     Route: 065
  8. ELTROMBOPAG [Concomitant]
     Active Substance: ELTROMBOPAG
     Indication: Thrombocytopenia
     Route: 065
  9. MYCOPHENOLATE MOFETIL [Concomitant]
     Active Substance: MYCOPHENOLATE MOFETIL
     Indication: Product used for unknown indication
     Route: 065

REACTIONS (4)
  - Cytopenia [Not Recovered/Not Resolved]
  - Transplant dysfunction [Recovered/Resolved]
  - Acute graft versus host disease [Unknown]
  - Cytomegalovirus infection reactivation [Unknown]
